FAERS Safety Report 6034426-X (Version None)
Quarter: 2009Q1

REPORT INFORMATION
  Report Type: 
  Country: None (occurrence: None)
  Receive Date: 20090112
  Receipt Date: 20090109
  Transmission Date: 20090719
  Serious: Yes (Hospitalization)
  Sender: FDA-Public Use
  Company Number: B0548872A

PATIENT
  Sex: Female
  Weight: 66.5 kg

DRUGS (2)
  1. TOPOTECAN [Suspect]
     Dosage: .75MG WEEKLY
     Route: 042
     Dates: start: 20081229
  2. CARBOPLATIN [Suspect]
     Route: 042

REACTIONS (2)
  - ABDOMINAL PAIN [None]
  - VIRAL INFECTION [None]
